FAERS Safety Report 12090602 (Version 1)
Quarter: 2016Q1

REPORT INFORMATION
  Report Type: Spontaneous
  Country: US (occurrence: US)
  Receive Date: 20160218
  Receipt Date: 20160218
  Transmission Date: 20160526
  Serious: No
  Sender: FDA-Public Use
  Company Number: US-PERRIGO-15US000927

PATIENT
  Age: 56 Year
  Sex: Female
  Weight: 61.22 kg

DRUGS (1)
  1. CETIRIZINE HYDROCHLORIDE. [Suspect]
     Active Substance: CETIRIZINE HYDROCHLORIDE
     Indication: PRURITUS
     Dosage: 10 MG, PRN
     Route: 048
     Dates: start: 20140428

REACTIONS (3)
  - Therapeutic response unexpected [Unknown]
  - Somnolence [Unknown]
  - Off label use [Unknown]

NARRATIVE: CASE EVENT DATE: 20140428
